FAERS Safety Report 19188660 (Version 1)
Quarter: 2021Q2

REPORT INFORMATION
  Report Type: Spontaneous
  Country: US (occurrence: US)
  Receive Date: 20210427
  Receipt Date: 20210427
  Transmission Date: 20210717
  Serious: Yes (Hospitalization)
  Sender: FDA-Public Use
  Company Number: None

PATIENT
  Age: 77 Year
  Sex: Male

DRUGS (14)
  1. MIRTAZEPINE 15MG [Concomitant]
  2. TACROLIMUS. [Suspect]
     Active Substance: TACROLIMUS
     Indication: IMMUNOSUPPRESSION
     Route: 048
     Dates: start: 20210419, end: 20210427
  3. TACROLIMUS. [Suspect]
     Active Substance: TACROLIMUS
     Indication: IMMUNOSUPPRESSION
     Route: 048
     Dates: start: 20210419, end: 20210427
  4. MYCOPHENOLATE 250MG [Concomitant]
     Active Substance: MYCOPHENOLIC ACID
     Dates: start: 20210419
  5. ROSUVASTATIN 10MG [Concomitant]
     Active Substance: ROSUVASTATIN
  6. ASPIRIN 81MG [Concomitant]
     Active Substance: ASPIRIN
  7. ONDANSETRON 4MG [Concomitant]
     Active Substance: ONDANSETRON
  8. METOPROLOL TARTRATE 25MG [Concomitant]
     Active Substance: METOPROLOL TARTRATE
     Dates: start: 20210419
  9. CLOPIDROGREL 75MG [Concomitant]
  10. ESOMEPRAZOLE 20MG [Concomitant]
     Active Substance: ESOMEPRAZOLE
  11. VALGANCICLOVIR 450MG [Concomitant]
     Active Substance: VALACYCLOVIR HYDROCHLORIDE
     Dates: start: 20210419
  12. PREDNISONE 5MG [Concomitant]
     Active Substance: PREDNISONE
     Dates: start: 20210419
  13. MAG OX 400MG [Concomitant]
  14. SMZ/TMP 400/80MG [Concomitant]
     Dates: start: 20210419

REACTIONS (2)
  - Lethargy [None]
  - Balance disorder [None]

NARRATIVE: CASE EVENT DATE: 20210427
